FAERS Safety Report 10235466 (Version 1)
Quarter: 2014Q2

REPORT INFORMATION
  Report Type: Spontaneous
  Country: GB (occurrence: None)
  Receive Date: 20140611
  Receipt Date: 20140611
  Transmission Date: 20141212
  Serious: Yes (Other)
  Sender: FDA-Public Use
  Company Number: IPC201405-000265

PATIENT
  Age: 59 Year
  Sex: Male

DRUGS (1)
  1. ALLOPURINOL (ALLOPURINOL) (ALLOPURINOL) [Suspect]

REACTIONS (1)
  - Drug reaction with eosinophilia and systemic symptoms [None]
